FAERS Safety Report 6248498-0 (Version None)
Quarter: 2009Q2

REPORT INFORMATION
  Report Type: 
  Country: None (occurrence: None)
  Receive Date: 20090624
  Receipt Date: 20090608
  Transmission Date: 20091009
  Serious: Yes (Death, Hospitalization)
  Sender: FDA-Public Use
  Company Number: 2009AL001942

PATIENT
  Age: 89 Year
  Sex: Male

DRUGS (7)
  1. DIGOXIN [Suspect]
     Dosage: 0.25MG, DAILY, PO
     Route: 048
     Dates: start: 20010101, end: 20070301
  2. LASIX [Concomitant]
  3. SODIUM BICARBONATE [Concomitant]
  4. LISINOPRIL [Concomitant]
  5. DUONEB [Concomitant]
  6. SILVADENE [Concomitant]
  7. AUGMENTIN [Concomitant]

REACTIONS (9)
  - ASTHENIA [None]
  - CARDIAC FAILURE CONGESTIVE [None]
  - CONDITION AGGRAVATED [None]
  - DEHYDRATION [None]
  - DIZZINESS [None]
  - ECONOMIC PROBLEM [None]
  - INJURY [None]
  - LEUKOCYTOSIS [None]
  - RENAL FAILURE [None]
